FAERS Safety Report 18209444 (Version 1)
Quarter: 2020Q3

REPORT INFORMATION
  Report Type: Spontaneous
  Country: US (occurrence: US)
  Receive Date: 20200828
  Receipt Date: 20200828
  Transmission Date: 20201103
  Serious: Yes (Other)
  Sender: FDA-Public Use
  Company Number: US-COOPERSURGICAL, INC.-US-2020CPS001937

PATIENT
  Age: 37 Year
  Sex: Female
  Weight: 64.85 kg

DRUGS (2)
  1. MACROBID [Concomitant]
     Active Substance: NITROFURANTOIN\NITROFURANTOIN MONOHYDRATE
     Indication: PRODUCT USED FOR UNKNOWN INDICATION
     Dosage: UNK
     Route: 065
  2. PARAGARD T 380A [Suspect]
     Active Substance: COPPER
     Indication: PRODUCT USED FOR UNKNOWN INDICATION
     Dosage: UNK
     Route: 015
     Dates: start: 20190123

REACTIONS (11)
  - Asthenia [Unknown]
  - Dysfunctional uterine bleeding [Unknown]
  - Syncope [Unknown]
  - Insomnia [Unknown]
  - Dyspareunia [Unknown]
  - Device dislocation [Unknown]
  - Drug ineffective [Unknown]
  - Pregnancy with contraceptive device [Recovered/Resolved]
  - Pelvic pain [Unknown]
  - Abortion spontaneous [Recovered/Resolved]
  - Complication associated with device [Unknown]

NARRATIVE: CASE EVENT DATE: 2019
